FAERS Safety Report 19155824 (Version 3)
Quarter: 2021Q2

REPORT INFORMATION
  Report Type: Spontaneous
  Country: US (occurrence: US)
  Receive Date: 20210419
  Receipt Date: 20210610
  Transmission Date: 20210717
  Serious: No
  Sender: FDA-Public Use
  Company Number: US-SA-2021SA122699

PATIENT
  Age: 52 Year
  Sex: Male

DRUGS (3)
  1. CLEXANE [Suspect]
     Active Substance: ENOXAPARIN SODIUM
     Dosage: UNK
  2. CLEXANE [Suspect]
     Active Substance: ENOXAPARIN SODIUM
     Indication: ANTICOAGULANT THERAPY
     Dosage: DRUG STRUCTURE DOSAGE : 120MG/ 0.8ML DRUG INTERVAL DOSAGE : BID DRUG TREATMENT DURATION: 2013
     Route: 065
  3. ASPIRIN [ACETYLSALICYLIC ACID] [Concomitant]
     Active Substance: ASPIRIN
     Dosage: UNK
     Route: 065

REACTIONS (3)
  - Skin discolouration [Unknown]
  - Drug ineffective [Unknown]
  - Ocular discomfort [Unknown]

NARRATIVE: CASE EVENT DATE: 20210412
